FAERS Safety Report 23854686 (Version 1)
Quarter: 2024Q2

REPORT INFORMATION
  Report Type: Spontaneous
  Country: US (occurrence: US)
  Receive Date: 20240514
  Receipt Date: 20240514
  Transmission Date: 20240716
  Serious: Yes (Death, Other)
  Sender: FDA-Public Use
  Company Number: US-BRISTOL-MYERS SQUIBB COMPANY-2024-073891

PATIENT
  Age: 65 Year
  Sex: Male

DRUGS (14)
  1. POMALYST [Suspect]
     Active Substance: POMALIDOMIDE
     Indication: Plasma cell myeloma
     Route: 048
     Dates: start: 20230623, end: 20240314
  2. DARZALEX [Suspect]
     Active Substance: DARATUMUMAB
     Indication: Plasma cell myeloma refractory
     Dates: end: 20240419
  3. CARFILZOMIB [Suspect]
     Active Substance: CARFILZOMIB
     Indication: Plasma cell myeloma refractory
     Dates: end: 20240419
  4. DEXAMETHASONE [Suspect]
     Active Substance: DEXAMETHASONE
     Indication: Plasma cell myeloma refractory
     Dates: end: 20240419
  5. ALBUTEROL [Concomitant]
     Active Substance: ALBUTEROL
  6. DARATUMUMAB [Concomitant]
     Active Substance: DARATUMUMAB
  7. DECADRON [Concomitant]
     Active Substance: DEXAMETHASONE
  8. METFORMIN [Concomitant]
     Active Substance: METFORMIN HYDROCHLORIDE
  9. GLIPIZIDE [Concomitant]
     Active Substance: GLIPIZIDE
  10. GABAPENTIN [Concomitant]
     Active Substance: GABAPENTIN
  11. ACYCLOVIR [Concomitant]
     Active Substance: ACYCLOVIR
  12. TIOTROPIUM [Concomitant]
     Active Substance: TIOTROPIUM
  13. FUROSEMIDE [Concomitant]
     Active Substance: FUROSEMIDE
  14. METHIMAZOLE [Concomitant]
     Active Substance: METHIMAZOLE

REACTIONS (1)
  - Death [Fatal]

NARRATIVE: CASE EVENT DATE: 20240420
